FAERS Safety Report 8980099 (Version 1)
Quarter: 2012Q4

REPORT INFORMATION
  Report Type: 
  Country: US (occurrence: US)
  Receive Date: 20121221
  Receipt Date: 20121221
  Transmission Date: 20130627
  Serious: Yes (Other)
  Sender: FDA-Public Use
  Company Number: CHPA2012US025421

PATIENT
  Age: 71 Year
  Sex: Female

DRUGS (5)
  1. NODOZ [Suspect]
     Indication: NARCOLEPSY
     Dosage: 0.5 DF, IN THE MORNING and SOMETIMES AT LUNCH
     Route: 048
     Dates: start: 1985, end: 20121205
  2. DRUG THERAPY NOS [Concomitant]
     Indication: NARCOLEPSY
     Dosage: Unk, Unk
  3. DRUG THERAPY NOS [Concomitant]
     Indication: NARCOLEPSY
     Dosage: Unk, Unk
  4. DEXEDRINE [Concomitant]
     Indication: NARCOLEPSY
     Dosage: Unk, Unk
     Dates: start: 1995, end: 2003
  5. STAY AWAKE [Concomitant]
     Indication: NARCOLEPSY
     Dosage: Unk, Unk

REACTIONS (7)
  - Depression [Recovered/Resolved]
  - Arthritis [Not Recovered/Not Resolved]
  - Fall [Recovered/Resolved]
  - Skin discolouration [Recovered/Resolved]
  - Weight decreased [Recovered/Resolved]
  - Therapeutic response unexpected [Unknown]
  - Off label use [Unknown]
